FAERS Safety Report 6605008-3 (Version None)
Quarter: 2010Q1

REPORT INFORMATION
  Report Type: 
  Country: None (occurrence: None)
  Receive Date: 20100226
  Receipt Date: 20100217
  Transmission Date: 20100710
  Serious: Yes (Other)
  Sender: FDA-Public Use
  Company Number: DE-BRISTOL-MYERS SQUIBB COMPANY-14982003

PATIENT
  Age: 34 Year
  Sex: Male

DRUGS (4)
  1. ABILIFY [Suspect]
     Route: 048
  2. AMPHETAMINE SULFATE [Suspect]
     Route: 048
  3. CANNABIS [Suspect]
     Route: 048
  4. SPEED [Suspect]
     Route: 048

REACTIONS (2)
  - DRUG ABUSE [None]
  - SYNCOPE [None]
